FAERS Safety Report 13663685 (Version 1)
Quarter: 2017Q2

REPORT INFORMATION
  Report Type: Spontaneous
  Country: US (occurrence: US)
  Receive Date: 20170616
  Receipt Date: 20170616
  Transmission Date: 20170830
  Serious: Yes (Other)
  Sender: FDA-Public Use
  Company Number: None

PATIENT
  Age: 53 Year
  Sex: Female

DRUGS (1)
  1. PROLIA [Suspect]
     Active Substance: DENOSUMAB
     Indication: PRODUCT USED FOR UNKNOWN INDICATION
     Dosage: 60MG EVERY 6 MONTHS SUB-Q
     Route: 058
     Dates: start: 20161217, end: 20170401

REACTIONS (2)
  - Therapy cessation [None]
  - Femur fracture [None]

NARRATIVE: CASE EVENT DATE: 20170330
